FAERS Safety Report 10229881 (Version 1)
Quarter: 2014Q2

REPORT INFORMATION
  Report Type: Spontaneous
  Country: US (occurrence: US)
  Receive Date: 20140611
  Receipt Date: 20140611
  Transmission Date: 20141212
  Serious: No
  Sender: FDA-Public Use
  Company Number: US-ABBVIE-13P-163-1100336-00

PATIENT
  Age: 64 Year
  Sex: Male
  Weight: 86.26 kg

DRUGS (1)
  1. K-TAB [Suspect]
     Indication: MINERAL SUPPLEMENTATION
     Dates: start: 2012

REACTIONS (1)
  - Medication residue present [Not Recovered/Not Resolved]
